FAERS Safety Report 17942009 (Version 1)
Quarter: 2020Q2

REPORT INFORMATION
  Report Type: Not Available
  Country: US (occurrence: US)
  Receive Date: 20200624
  Receipt Date: 20200624
  Transmission Date: 20200714
  Serious: No
  Sender: FDA-Public Use
  Company Number: US-NEUROCRINE BIOSCIENCES INC.-2020NBI02038

PATIENT
  Age: 69 Year
  Sex: Female

DRUGS (9)
  1. LITHIUM CARB [Concomitant]
     Active Substance: LITHIUM CARBONATE
  2. NEPURON [Concomitant]
  3. RIVASTIGMINE. [Concomitant]
     Active Substance: RIVASTIGMINE
  4. LEVOTHYROXINE. [Concomitant]
     Active Substance: LEVOTHYROXINE
  5. LORAZEPAM. [Concomitant]
     Active Substance: LORAZEPAM
  6. SUMATRIPTAN. [Concomitant]
     Active Substance: SUMATRIPTAN
  7. INGREZZA [Suspect]
     Active Substance: VALBENAZINE
     Indication: TARDIVE DYSKINESIA
     Route: 048
     Dates: start: 20190821, end: 202004
  8. LAMOTRIGINE. [Concomitant]
     Active Substance: LAMOTRIGINE
  9. GABAPENTIN. [Concomitant]
     Active Substance: GABAPENTIN

REACTIONS (1)
  - Muscle twitching [Recovered/Resolved]
